FAERS Safety Report 12629971 (Version 2)
Quarter: 2025Q3

REPORT INFORMATION
  Report Type: Report from Study
  Country: CA (occurrence: CA)
  Receive Date: 20160808
  Receipt Date: 20250829
  Transmission Date: 20251021
  Serious: Yes (Hospitalization, Other)
  Sender: PFIZER
  Company Number: CA-TAKEDA-2016TUS013330

PATIENT
  Age: 36 Year
  Sex: Male

DRUGS (13)
  1. PANTOPRAZOLE SODIUM [Suspect]
     Active Substance: PANTOPRAZOLE SODIUM
     Dosage: 40 MG, QD (ENTERIC COATED TAB)
     Route: 065
     Dates: start: 2012
  2. ENTYVIO [Suspect]
     Active Substance: VEDOLIZUMAB
     Indication: Colitis ulcerative
     Route: 042
     Dates: start: 20160614
  3. ENTYVIO [Suspect]
     Active Substance: VEDOLIZUMAB
     Route: 042
     Dates: start: 20170527
  4. ASACOL [Concomitant]
     Active Substance: MESALAMINE
     Dosage: 1200 MG, TID
     Route: 048
  5. TACROLIMUS [Concomitant]
     Active Substance: TACROLIMUS
     Dosage: 5 MG, QD
     Route: 048
  6. ZOPICLONE [Concomitant]
     Active Substance: ZOPICLONE
     Dosage: 7.5 MG, QD
     Route: 048
  7. TYLENOL WITH CODEINE [Concomitant]
     Active Substance: ACETAMINOPHEN\CODEINE PHOSPHATE
     Dosage: UNK, 1/WEEK
     Route: 048
  8. SYNTHROID [Concomitant]
     Active Substance: LEVOTHYROXINE SODIUM
     Dosage: 100 ?G, QD
     Route: 048
  9. ATIVAN [Concomitant]
     Active Substance: LORAZEPAM
     Route: 048
  10. PREDNISONE [Concomitant]
     Active Substance: PREDNISONE
     Route: 065
     Dates: end: 20151111
  11. MIRTAZAPINE [Concomitant]
     Active Substance: MIRTAZAPINE
     Dates: start: 202105
  12. ACCUTANE [Concomitant]
     Active Substance: ISOTRETINOIN
  13. URSODIOL [Concomitant]
     Active Substance: URSODIOL

REACTIONS (4)
  - Hepatic infection [Unknown]
  - Cholangitis sclerosing [Unknown]
  - Inguinal hernia [Unknown]
  - Liver function test increased [Unknown]

NARRATIVE: CASE EVENT DATE: 20120321
